FAERS Safety Report 7653319-5 (Version None)
Quarter: 2011Q3

REPORT INFORMATION
  Report Type: 
  Country: None (occurrence: None)
  Receive Date: 20110803
  Receipt Date: 20110719
  Transmission Date: 20111222
  Serious: No
  Sender: FDA-Public Use
  Company Number: US-BAYER-2011-064197

PATIENT
  Sex: Female

DRUGS (2)
  1. ZOLOFT [Concomitant]
  2. ALEVE (CAPLET) [Suspect]
     Dosage: 5 DF, UNK

REACTIONS (2)
  - CHEST DISCOMFORT [None]
  - FEELING JITTERY [None]
